FAERS Safety Report 7600333-1 (Version None)
Quarter: 2011Q2

REPORT INFORMATION
  Report Type: 
  Country: None (occurrence: None)
  Receive Date: 20110629
  Receipt Date: 20110616
  Transmission Date: 20111010
  Serious: Yes (Hospitalization)
  Sender: FDA-Public Use
  Company Number: 2011MA006767

PATIENT
  Age: 25 Year
  Sex: Female

DRUGS (2)
  1. METOCLOPRAMIDE [Suspect]
     Indication: CONSTIPATION
  2. ANALGESICS [Concomitant]

REACTIONS (19)
  - PORPHYRIA ACUTE [None]
  - DEMYELINATING POLYNEUROPATHY [None]
  - BACK PAIN [None]
  - ABDOMINAL DISTENSION [None]
  - FAECALOMA [None]
  - TRANSAMINASES INCREASED [None]
  - PAIN [None]
  - MEGACOLON [None]
  - CONVULSION [None]
  - BLOOD CREATININE INCREASED [None]
  - MONOPARESIS [None]
  - INAPPROPRIATE ANTIDIURETIC HORMONE SECRETION [None]
  - CHEST PAIN [None]
  - POSTERIOR REVERSIBLE ENCEPHALOPATHY SYNDROME [None]
  - ANAEMIA [None]
  - BLOOD PRESSURE INCREASED [None]
  - PLATELET COUNT DECREASED [None]
  - HALLUCINATION [None]
  - HYPONATRAEMIA [None]
